FAERS Safety Report 25801358 (Version 1)
Quarter: 2025Q3

REPORT INFORMATION
  Report Type: Spontaneous
  Country: US (occurrence: US)
  Receive Date: 20250915
  Receipt Date: 20250915
  Transmission Date: 20251021
  Serious: Yes (Hospitalization, Other)
  Sender: APOTEX
  Company Number: US-APOTEX-2025AP029836

PATIENT
  Age: 10 Year
  Sex: Female

DRUGS (6)
  1. GEMCITABINE [Suspect]
     Active Substance: GEMCITABINE
     Indication: Germ cell neoplasm
     Route: 065
  2. GEMCITABINE [Suspect]
     Active Substance: GEMCITABINE
     Indication: Neoplasm recurrence
  3. OXALIPLATIN [Suspect]
     Active Substance: OXALIPLATIN
     Indication: Germ cell neoplasm
     Route: 065
  4. OXALIPLATIN [Suspect]
     Active Substance: OXALIPLATIN
     Indication: Neoplasm recurrence
  5. PACLITAXEL [Concomitant]
     Active Substance: PACLITAXEL
     Indication: Germ cell neoplasm
     Route: 065
  6. PACLITAXEL [Concomitant]
     Active Substance: PACLITAXEL
     Indication: Neoplasm recurrence

REACTIONS (2)
  - Venoocclusive liver disease [Recovered/Resolved]
  - Acute respiratory distress syndrome [Recovered/Resolved]
